FAERS Safety Report 14288911 (Version 2)
Quarter: 2017Q4

REPORT INFORMATION
  Report Type: Spontaneous
  Country: CN (occurrence: CN)
  Receive Date: 20171215
  Receipt Date: 20171229
  Transmission Date: 20180321
  Serious: Yes (Hospitalization, Other)
  Sender: FDA-Public Use
  Company Number: CN-VISTAPHARM, INC.-VER201712-001317

PATIENT
  Age: 51 Year
  Sex: Male

DRUGS (3)
  1. VALPROIC ACID. [Suspect]
     Active Substance: VALPROIC ACID
     Indication: EPILEPSY
  2. NOVOMIX [Concomitant]
     Active Substance: INSULIN ASPART
     Indication: DIABETES MELLITUS
     Dosage: INJECTION; 30 PENFILL OF 20 UNITS QD7 AND 18 UNITS QD18
     Route: 058
  3. VALPROIC ACID. [Suspect]
     Active Substance: VALPROIC ACID

REACTIONS (1)
  - Ileus paralytic [Recovered/Resolved]
